APPROVED DRUG PRODUCT: SIMVASTATIN
Active Ingredient: SIMVASTATIN
Strength: 40MG
Dosage Form/Route: TABLET;ORAL
Application: A090383 | Product #004 | TE Code: AB
Applicant: MICRO LABS LTD
Approved: Sep 16, 2011 | RLD: No | RS: No | Type: RX